FAERS Safety Report 13066759 (Version 1)
Quarter: 2016Q4

REPORT INFORMATION
  Report Type: Spontaneous
  Country: US (occurrence: US)
  Receive Date: 20161227
  Receipt Date: 20161227
  Transmission Date: 20170207
  Serious: Yes (Hospitalization, Other)
  Sender: FDA-Public Use
  Company Number: US-ASTRAZENECA-2016SF34155

PATIENT
  Age: 23224 Day
  Sex: Male
  Weight: 83.5 kg

DRUGS (8)
  1. PLAVIX [Concomitant]
     Active Substance: CLOPIDOGREL BISULFATE
     Indication: CORONARY ARTERY DISEASE
  2. PREDNISONE. [Concomitant]
     Active Substance: PREDNISONE
  3. TYLENOL [Concomitant]
     Active Substance: ACETAMINOPHEN
  4. ASPIRIN. [Concomitant]
     Active Substance: ASPIRIN
  5. ATORVASTATIN [Concomitant]
     Active Substance: ATORVASTATIN
     Indication: CORONARY ARTERY DISEASE
  6. BRILINTA [Suspect]
     Active Substance: TICAGRELOR
     Indication: STENT PLACEMENT
     Route: 048
  7. BRILINTA [Suspect]
     Active Substance: TICAGRELOR
     Indication: ACUTE CORONARY SYNDROME
     Route: 048
  8. HUMIRA [Suspect]
     Active Substance: ADALIMUMAB
     Indication: RHEUMATOID ARTHRITIS
     Dosage: 40 MG/0.8 ML
     Route: 058
     Dates: start: 20151111, end: 20160814

REACTIONS (10)
  - Myocardial infarction [Recovering/Resolving]
  - Choking [Unknown]
  - Deafness [Not Recovered/Not Resolved]
  - Arthralgia [Recovering/Resolving]
  - Weight decreased [Recovering/Resolving]
  - Drug ineffective [Unknown]
  - Tooth fracture [Not Recovered/Not Resolved]
  - Dysphagia [Not Recovered/Not Resolved]
  - Ventricular tachycardia [Recovering/Resolving]
  - Urticaria [Recovering/Resolving]

NARRATIVE: CASE EVENT DATE: 2016
